FAERS Safety Report 4545063-8 (Version None)
Quarter: 2004Q4

REPORT INFORMATION
  Report Type: 
  Country: None (occurrence: None)
  Receive Date: 20041222
  Receipt Date: 20040616
  Transmission Date: 20050328
  Serious: Yes (Hospitalization, Other)
  Sender: FDA-Public Use
  Company Number: US_981214153

PATIENT
  Age: 42 Year
  Sex: Female

DRUGS (9)
  1. HUMULIN N [Suspect]
     Indication: DIABETES MELLITUS
     Dosage: 38 U DAY
  2. HUMULIN R [Suspect]
     Indication: DIABETES MELLITUS
     Dates: start: 19981122
  3. HUMALOG [Suspect]
     Indication: DIABETES MELLITUS
  4. HUMULIN U [Suspect]
     Indication: DIABETES MELLITUS
     Dosage: 15 U DAY
     Dates: start: 19990106
  5. ACCOLATE [Concomitant]
  6. ZESTRIL [Concomitant]
  7. SERZONE [Concomitant]
  8. RANITIDINE [Concomitant]
  9. HYDROCODONE [Concomitant]

REACTIONS (23)
  - BACK PAIN [None]
  - BALANCE DISORDER [None]
  - BLOOD PRESSURE DECREASED [None]
  - BODY HEIGHT INCREASED [None]
  - CEREBROVASCULAR ACCIDENT [None]
  - COMA [None]
  - DRUG EFFECT INCREASED [None]
  - DRUG INEFFECTIVE [None]
  - FEELING ABNORMAL [None]
  - FLUID RETENTION [None]
  - HEADACHE [None]
  - HYPERGLYCAEMIA [None]
  - HYPOGLYCAEMIA [None]
  - INJECTION SITE MASS [None]
  - INJECTION SITE SWELLING [None]
  - INSOMNIA [None]
  - MALAISE [None]
  - NEUROPATHY [None]
  - RENAL FAILURE [None]
  - VAGINAL HAEMORRHAGE [None]
  - VAGINAL PAIN [None]
  - VOMITING [None]
  - WEIGHT DECREASED [None]
